FAERS Safety Report 4939645-9 (Version None)
Quarter: 2006Q1

REPORT INFORMATION
  Report Type: 
  Country: None (occurrence: None)
  Receive Date: 20060310
  Receipt Date: 20051102
  Transmission Date: 20060701
  Serious: Yes (Hospitalization, Other)
  Sender: FDA-Public Use
  Company Number: US-MERCK-0511USA00629

PATIENT
  Sex: Female
  Weight: 99 kg

DRUGS (16)
  1. VIOXX [Suspect]
     Indication: PAIN
     Route: 048
     Dates: start: 20010801, end: 20040901
  2. VIOXX [Suspect]
     Indication: ARTHRITIS
     Route: 048
     Dates: start: 20010801, end: 20040901
  3. PRILOSEC [Concomitant]
     Route: 065
  4. INSULIN [Concomitant]
     Route: 065
  5. PREMPRO [Concomitant]
     Route: 065
  6. CELEXA [Concomitant]
     Route: 065
  7. DIFLUCAN [Concomitant]
     Route: 065
  8. CIPRO [Concomitant]
     Route: 065
  9. EFFEXOR [Concomitant]
     Route: 065
  10. MACROBID [Concomitant]
     Route: 065
  11. TRIMOX [Concomitant]
     Route: 065
  12. HYDROCODONE BITARTRATE [Concomitant]
     Route: 065
  13. OMEPRAZOLE [Concomitant]
     Route: 065
  14. ACTOS [Concomitant]
     Route: 065
  15. PROMETHAZINE [Concomitant]
     Route: 065
  16. WELLBUTRIN [Concomitant]
     Route: 065

REACTIONS (7)
  - ARTERIOSCLEROSIS [None]
  - CARDIAC DISORDER [None]
  - CARDIOVASCULAR DISORDER [None]
  - CORONARY ARTERY DISEASE [None]
  - DEPRESSION [None]
  - HYPERTENSION [None]
  - MYOCARDIAL INFARCTION [None]
